FAERS Safety Report 5652204-8 (Version None)
Quarter: 2008Q1

REPORT INFORMATION
  Report Type: 
  Country: None (occurrence: None)
  Receive Date: 20080304
  Receipt Date: 20080222
  Transmission Date: 20080703
  Serious: Yes (Death)
  Sender: FDA-Public Use
  Company Number: 2008000363

PATIENT
  Age: 59 Year
  Sex: Male

DRUGS (2)
  1. ERLOTINIB (ERLOTINIB HC1) (TABLET) (ERLOTINIB HCL( [Suspect]
     Indication: NON-SMALL CELL LUNG CANCER
     Dosage: 100 MG, 1 IN 1 D, ORAL
     Dates: start: 20051014, end: 20071216
  2. LORINDEN N [Concomitant]

REACTIONS (1)
  - DEATH [None]
